FAERS Safety Report 4364452-8 (Version None)
Quarter: 2004Q2

REPORT INFORMATION
  Report Type: 
  Country: None (occurrence: None)
  Receive Date: 20040525
  Receipt Date: 20040325
  Transmission Date: 20050107
  Serious: Yes (Death, Life-Threatening)
  Sender: FDA-Public Use
  Company Number: NL-GLAXOSMITHKLINE-B0328230A

PATIENT
  Age: 81 Year
  Sex: Male

DRUGS (10)
  1. AMOXICILLIN AND CLAVULANATE POTASSIUM [Suspect]
     Indication: PNEUMONIA
     Dates: start: 20040206, end: 20040212
  2. FLUTICASONE PROPIONATE [Concomitant]
     Dosage: 250MCG THREE TIMES PER DAY
  3. LENDORM [Concomitant]
     Indication: SLEEP DISORDER
     Dosage: .25MG PER DAY
  4. ASPIRIN [Concomitant]
     Indication: ATRIAL FIBRILLATION
     Dosage: 80MG PER DAY
  5. IPRATROPIUM BROMIDE [Concomitant]
     Dosage: 20MCG FOUR TIMES PER DAY
  6. FORMOTEROL [Concomitant]
     Dosage: 12MCG THREE TIMES PER DAY
  7. ACETYLCYSTEINE [Concomitant]
     Dosage: 600MG PER DAY
  8. DILTIAZEM [Concomitant]
     Indication: ATRIAL FIBRILLATION
     Dosage: 180MG PER DAY
  9. GINKO BILOBA [Concomitant]
     Dosage: 40MG PER DAY
  10. BROTIZOLAM [Concomitant]

REACTIONS (17)
  - ALANINE AMINOTRANSFERASE INCREASED [None]
  - ANOREXIA [None]
  - BLOOD ALKALINE PHOSPHATASE INCREASED [None]
  - BLOOD BILIRUBIN INCREASED [None]
  - CHROMATURIA [None]
  - CONSTIPATION [None]
  - DEATH [None]
  - FAECES DISCOLOURED [None]
  - FATIGUE [None]
  - GAMMA-GLUTAMYLTRANSFERASE INCREASED [None]
  - HAEMOGLOBIN DECREASED [None]
  - HEPATITIS CHOLESTATIC [None]
  - HICCUPS [None]
  - JAUNDICE CHOLESTATIC [None]
  - PRURITUS [None]
  - VOMITING [None]
  - WEIGHT DECREASED [None]
